FAERS Safety Report 5230713-3 (Version None)
Quarter: 2007Q1

REPORT INFORMATION
  Report Type: 
  Country: None (occurrence: None)
  Receive Date: 20070206
  Receipt Date: 20070131
  Transmission Date: 20070707
  Serious: Yes (Hospitalization)
  Sender: FDA-Public Use
  Company Number: GB-GLAXOSMITHKLINE-B0359639A

PATIENT
  Sex: Female

DRUGS (5)
  1. SEROXAT [Suspect]
     Indication: DEPRESSION
     Route: 065
     Dates: start: 20010629, end: 20020901
  2. TRAZODONE HCL [Concomitant]
     Indication: INSOMNIA
     Dosage: 50MG AT NIGHT
     Route: 065
     Dates: start: 20020101
  3. FLUOXETINE [Concomitant]
     Route: 065
     Dates: start: 20030601
  4. PARACETAMOL [Concomitant]
     Route: 065
  5. TEMAZEPAM [Concomitant]
     Route: 065

REACTIONS (7)
  - AGGRESSION [None]
  - ANGER [None]
  - ANXIETY [None]
  - DRUG WITHDRAWAL SYNDROME [None]
  - EMOTIONAL DISORDER [None]
  - PANIC REACTION [None]
  - SUICIDE ATTEMPT [None]
